FAERS Safety Report 21525228 (Version 4)
Quarter: 2024Q1

REPORT INFORMATION
  Report Type: Spontaneous
  Country: DE (occurrence: DE)
  Receive Date: 20221030
  Receipt Date: 20240131
  Transmission Date: 20240410
  Serious: Yes (Life-Threatening, Hospitalization, Other)
  Sender: FDA-Public Use
  Company Number: DE-AUROBINDO-AUR-APL-2017-45650

PATIENT
  Age: 65 Year
  Sex: Male
  Weight: 90 kg

DRUGS (20)
  1. DOCETAXEL [Suspect]
     Active Substance: DOCETAXEL\DOCETAXEL ANHYDROUS
     Indication: Lung adenocarcinoma
     Dosage: 150 MILLIGRAM/SQ. METER, ONCE A DAY,TOTAL DAILY DOSE: 150 MG/M2 BSA (BODY SURFACE AREA) FORM OF ADMI
     Route: 042
     Dates: start: 20170418
  2. NINTEDANIB [Suspect]
     Active Substance: NINTEDANIB
     Indication: Lung adenocarcinoma
     Dosage: 200 MILLIGRAM (DAILY DOSE: 400 MG MILLIGRAM(S) EVERY DAY
     Route: 048
     Dates: start: 20170419
  3. NINTEDANIB [Suspect]
     Active Substance: NINTEDANIB
     Dosage: 200 MILLIGRAM
     Route: 048
     Dates: end: 20170620
  4. NINTEDANIB [Suspect]
     Active Substance: NINTEDANIB
     Dosage: 200 MILLIGRAM
     Route: 048
     Dates: end: 20171006
  5. NINTEDANIB [Suspect]
     Active Substance: NINTEDANIB
     Dosage: UNK
     Route: 048
  6. SYMBICORT [Concomitant]
     Active Substance: BUDESONIDE\FORMOTEROL FUMARATE DIHYDRATE
     Indication: Pre-existing disease
     Dosage: 4.5 MILLIGRAM (DAILY DOSE: 4.5 MG MILLIGRAM(S) EVERY DAY)
     Route: 055
  7. AQUAPHOR [Concomitant]
     Active Substance: PETROLATUM
     Indication: Pre-existing disease
     Dosage: DAILY DOSE: 10 MG MILLIGRAM(S) EVERY DAY
     Route: 048
  8. PANTOPRAZOLE [Concomitant]
     Active Substance: PANTOPRAZOLE
     Indication: Prophylaxis
     Dosage: UNK
     Route: 048
     Dates: start: 20170501
  9. SODIUM CHLORIDE [Concomitant]
     Active Substance: SODIUM CHLORIDE
     Indication: Prophylaxis
     Dosage: 1000 MILLIMETER(1000 ML MILLILITRE(S) EVERY DAY)
     Route: 042
     Dates: start: 20170428
  10. ACLIDINIUM BROMIDE [Concomitant]
     Active Substance: ACLIDINIUM BROMIDE
     Indication: Pre-existing disease
     Dosage: DAILY DOSE: 322 ?G MICROGRAM(S) EVERY DAY
  11. LEVOTHYROXINENATRIUM TEVA [Concomitant]
     Indication: Pre-existing disease
     Dosage: DAILY DOSE: 0.05 MG MILLIGRAM(S) EVERY DAY
     Route: 048
  12. LEVOTHYROXINENATRIUM TEVA [Concomitant]
     Dosage: DAILY DOSE: 0.05 MG MILLIGRAM(S) EVERY DAY
     Route: 048
  13. ALDACTONE [Concomitant]
     Active Substance: SPIRONOLACTONE
     Indication: Prophylaxis
     Dosage: DAILY DOSE: 25 MG MILLIGRAM(S) EVERY DAY
     Route: 048
     Dates: start: 20161124
  14. PREDNISOLONE [Concomitant]
     Active Substance: PREDNISOLONE
     Indication: Pre-existing disease
     Dosage: DAILY DOSE: 15 MG MILLIGRAM(S) EVERY DAY
     Route: 048
  15. ASPIRIN [Concomitant]
     Active Substance: ASPIRIN
     Indication: Pre-existing disease
     Dosage: DAILY DOSE: 100 MG MILLIGRAM(S) EVERY DAY
     Route: 048
     Dates: start: 20170414
  16. NORVASC [Concomitant]
     Active Substance: AMLODIPINE BESYLATE
     Indication: Prophylaxis
     Dosage: DAILY DOSE: 5 MG MILLIGRAM(S) EVERY DAY
     Route: 048
     Dates: start: 20170425
  17. Losnesium [Concomitant]
     Indication: Prophylaxis
     Dosage: UNK
     Route: 048
  18. HYALURONATE SODIUM [Concomitant]
     Active Substance: HYALURONATE SODIUM
     Indication: Adverse event
     Dosage: 3 MILLIGRAM
     Route: 031
     Dates: start: 20170509
  19. HYALURONATE SODIUM [Concomitant]
     Active Substance: HYALURONATE SODIUM
     Indication: Adverse event
     Dosage: 3 MILLIGRAM
     Route: 031
     Dates: start: 20170509
  20. LEVOTHYROXINE SODIUM [Concomitant]
     Active Substance: LEVOTHYROXINE SODIUM
     Indication: Pre-existing disease
     Dosage: 0.05 MILLIGRAM
     Route: 048

REACTIONS (17)
  - Febrile neutropenia [Recovered/Resolved]
  - C-reactive protein increased [Recovered/Resolved]
  - Tumour pain [Recovered/Resolved]
  - Bronchitis [Recovered/Resolved]
  - Stomatitis [Recovered/Resolved]
  - Hypokalaemia [Recovered/Resolved]
  - White blood cell count decreased [Recovered/Resolved]
  - Palmar-plantar erythrodysaesthesia syndrome [Not Recovered/Not Resolved]
  - Constipation [Recovered/Resolved]
  - Weight decreased [Recovered/Resolved]
  - Abdominal pain upper [Recovered/Resolved]
  - Nausea [Recovered/Resolved]
  - Decreased appetite [Recovered/Resolved]
  - Hyponatraemia [Not Recovered/Not Resolved]
  - Diarrhoea [Unknown]
  - Vision blurred [Not Recovered/Not Resolved]
  - Neutrophil count decreased [Recovered/Resolved]

NARRATIVE: CASE EVENT DATE: 20170425
